FAERS Safety Report 21545712 (Version 2)
Quarter: 2022Q4

REPORT INFORMATION
  Report Type: Spontaneous
  Country: US (occurrence: US)
  Receive Date: 20221103
  Receipt Date: 20221116
  Transmission Date: 20230112
  Serious: Yes (Other)
  Sender: FDA-Public Use
  Company Number: US-SUN PHARMACEUTICAL INDUSTRIES LTD-2022R1-361689

PATIENT
  Age: 17 Year
  Sex: Male

DRUGS (3)
  1. DOXYCYCLINE [Suspect]
     Active Substance: DOXYCYCLINE
     Indication: Bartonella test positive
     Dosage: 100 MILLIGRAM, BID
     Route: 048
  2. PREDNISONE [Suspect]
     Active Substance: PREDNISONE
     Indication: Bartonella test positive
     Dosage: 100 MILLIGRAM, DAILY
     Route: 048
  3. RIFAMPIN [Interacting]
     Active Substance: RIFAMPIN
     Indication: Bartonella test positive
     Dosage: 300 MILLIGRAM, BID
     Route: 048

REACTIONS (2)
  - Condition aggravated [Unknown]
  - Drug interaction [Unknown]
